FAERS Safety Report 6427783-3 (Version None)
Quarter: 2009Q4

REPORT INFORMATION
  Report Type: 
  Country: None (occurrence: None)
  Receive Date: 20091030
  Receipt Date: 20090219
  Transmission Date: 20100525
  Serious: Yes (Hospitalization, Other)
  Sender: FDA-Public Use
  Company Number: 000#5#2008-00187

PATIENT
  Sex: Male
  Weight: 67 kg

DRUGS (5)
  1. ROTIGOTINE (ROTIGOTINE) [Suspect]
     Indication: PARKINSON'S DISEASE
     Dosage: (60 CM2 TRANSDERMAL)
     Route: 062
     Dates: start: 20030212
  2. MAGNESIUM LACTATE [Concomitant]
  3. TRAZODONE HCL [Concomitant]
  4. ACETYLSALICYLIC ACID [Concomitant]
  5. BUFLOMEDIL HYDROCHLORIDE [Concomitant]

REACTIONS (1)
  - FEMORAL ARTERIAL STENOSIS [None]
